FAERS Safety Report 10792197 (Version 2)
Quarter: 2015Q3

REPORT INFORMATION
  Report Type: Spontaneous
  Country: DE (occurrence: DE)
  Receive Date: 20150213
  Receipt Date: 20150713
  Transmission Date: 20151125
  Serious: Yes (Congenital Anomaly, Other)
  Sender: FDA-Public Use
  Company Number: DE-ROXANE LABORATORIES, INC.-2015-RO-00225RO

PATIENT
  Age: 1 Day
  Sex: Male
  Weight: 2.52 kg

DRUGS (6)
  1. IBUPROFEN. [Suspect]
     Active Substance: IBUPROFEN
     Indication: FOETAL EXPOSURE DURING PREGNANCY
     Route: 064
  2. METHOTREXATE [Suspect]
     Active Substance: METHOTREXATE
     Indication: FOETAL EXPOSURE DURING PREGNANCY
     Route: 064
  3. PREDNISOLONE. [Suspect]
     Active Substance: PREDNISOLONE
     Indication: FOETAL EXPOSURE DURING PREGNANCY
     Route: 064
  4. OMEPRAZOLE. [Suspect]
     Active Substance: OMEPRAZOLE
     Indication: FOETAL EXPOSURE DURING PREGNANCY
     Route: 064
  5. ETANERCEPT [Suspect]
     Active Substance: ETANERCEPT
     Indication: FOETAL EXPOSURE DURING PREGNANCY
     Route: 064
  6. ADALIMUMAB [Suspect]
     Active Substance: ADALIMUMAB
     Indication: FOETAL EXPOSURE DURING PREGNANCY
     Route: 064

REACTIONS (6)
  - Bundle branch block right [Unknown]
  - Pulmonary hypertension [Unknown]
  - Pericardial effusion [Unknown]
  - Atrial septal defect [Unknown]
  - Patent ductus arteriosus [Unknown]
  - Congenital cystic lung [Unknown]
